FAERS Safety Report 6590177-4 (Version None)
Quarter: 2010Q1

REPORT INFORMATION
  Report Type: 
  Country: None (occurrence: None)
  Receive Date: 20100219
  Receipt Date: 20100212
  Transmission Date: 20100710
  Serious: Yes (Hospitalization, Other)
  Sender: FDA-Public Use
  Company Number: US-ASTRAZENECA-2010SE06431

PATIENT
  Age: 68 Year
  Sex: Female
  Weight: 54.9 kg

DRUGS (1)
  1. CRESTOR [Suspect]
     Indication: BLOOD CHOLESTEROL INCREASED
     Route: 048
     Dates: start: 20060101, end: 20100101

REACTIONS (4)
  - DIZZINESS [None]
  - FOOD AVERSION [None]
  - GAIT DISTURBANCE [None]
  - WEIGHT DECREASED [None]
